FAERS Safety Report 8849464 (Version 4)
Quarter: 2013Q1

REPORT INFORMATION
  Report Type: Spontaneous
  Country: US (occurrence: US)
  Receive Date: 20121019
  Receipt Date: 20130116
  Transmission Date: 20140127
  Serious: Yes (Disabling, Other)
  Sender: FDA-Public Use
  Company Number: US-PFIZER INC-2012257523

PATIENT
  Age: 28 Year
  Sex: Female
  Weight: 59 kg

DRUGS (10)
  1. DEPO-PROVERA [Suspect]
     Indication: CONTRACEPTION
     Dosage: UNK
     Dates: start: 2001, end: 2002
  2. DEPO-PROVERA [Suspect]
     Indication: ENDOMETRIOSIS
     Dosage: UNK, EVERY 13 WEEKS
     Route: 030
     Dates: start: 200201, end: 200608
  3. DEPO-PROVERA [Suspect]
     Dosage: UNK
     Dates: end: 2007
  4. SERTRALINE [Concomitant]
     Indication: ANXIETY
     Dosage: 200 MG, 2X/DAY
     Dates: start: 2012
  5. SERTRALINE [Concomitant]
     Indication: DEPRESSION
  6. BENZTROPINE MESYLATE [Concomitant]
     Indication: ANXIETY
     Dosage: 0.5 MG, 1X/DAY
     Dates: start: 2012
  7. BENZTROPINE MESYLATE [Concomitant]
     Indication: DEPRESSION
  8. VISTARIL [Concomitant]
     Indication: ANXIETY
     Dosage: 25 MG, 3X/DAY
     Dates: start: 2012
  9. VISTARIL [Concomitant]
     Indication: DEPRESSION
  10. WELLBUTRIN [Concomitant]
     Indication: DEPRESSION
     Dosage: UNK
     Dates: start: 2004, end: 2006

REACTIONS (9)
  - Osteoporosis [Not Recovered/Not Resolved]
  - Intervertebral disc degeneration [Not Recovered/Not Resolved]
  - Arthropathy [Not Recovered/Not Resolved]
  - Back disorder [Not Recovered/Not Resolved]
  - Hypertension [Unknown]
  - Teeth brittle [Unknown]
  - Oral pain [Unknown]
  - Blister [Unknown]
  - Pain [Unknown]
